FAERS Safety Report 20074719 (Version 1)
Quarter: 2021Q4

REPORT INFORMATION
  Report Type: Spontaneous
  Country: US (occurrence: None)
  Receive Date: 20211115
  Receipt Date: 20211115
  Transmission Date: 20220303
  Serious: Yes (Hospitalization, Disabling)
  Sender: FDA-Public Use
  Company Number: None

PATIENT
  Age: 84 Year
  Sex: Male
  Weight: 98.7 kg

DRUGS (1)
  1. TESTOSTERONE CYPIONATE [Suspect]
     Active Substance: TESTOSTERONE CYPIONATE
     Dosage: OTHER FREQUENCY : EVERY 2 WEEKS;?
     Route: 030

REACTIONS (2)
  - Deep vein thrombosis [None]
  - Polycythaemia [None]

NARRATIVE: CASE EVENT DATE: 20211101
